FAERS Safety Report 8932111 (Version 1)
Quarter: 2012Q4

REPORT INFORMATION
  Report Type: Report from Study
  Country: US (occurrence: US)
  Receive Date: 20121128
  Receipt Date: 20121128
  Transmission Date: 20130627
  Serious: Yes (Other)
  Sender: FDA-Public Use
  Company Number: US-JNJFOC-20121111089

PATIENT
  Age: 19 Year

DRUGS (10)
  1. REMICADE [Suspect]
     Indication: COLITIS ULCERATIVE
     Dosage: started infliximab a little less than two weeks ago
     Route: 042
     Dates: start: 2012
  2. ASACOL [Concomitant]
  3. PREDNISONE [Concomitant]
     Indication: PRODUCT USED FOR UNKNOWN INDICATION
  4. PREDNISONE [Concomitant]
     Indication: PRODUCT USED FOR UNKNOWN INDICATION
  5. SINGULAIR [Concomitant]
  6. ELAVIL [Concomitant]
  7. IRON [Concomitant]
  8. VITAMIN B [Concomitant]
  9. VITAMIN C [Concomitant]
  10. MULTIVITAMINS [Concomitant]

REACTIONS (10)
  - Asthma [Unknown]
  - Gait disturbance [Unknown]
  - Pyrexia [Unknown]
  - Chills [Unknown]
  - Dizziness [Unknown]
  - Nausea [Unknown]
  - Tremor [Unknown]
  - Headache [Unknown]
  - Epistaxis [Unknown]
  - Frequent bowel movements [Unknown]
